FAERS Safety Report 10062856 (Version 1)
Quarter: 2014Q1

REPORT INFORMATION
  Report Type: Spontaneous
  Country: US (occurrence: None)
  Receive Date: 20140328
  Receipt Date: 20140328
  Transmission Date: 20141002
  Serious: No
  Sender: FDA-Public Use
  Company Number: CABO-14004024

PATIENT
  Age: 13 Year
  Sex: Male
  Weight: 44.4 kg

DRUGS (5)
  1. COMETRIQ [Suspect]
     Indication: CONNECTIVE TISSUE NEOPLASM
     Route: 048
     Dates: start: 20140210
  2. METHADONE (METHADONE) [Concomitant]
  3. LEXAPRO (ESCITALOPRAM OXALATE) [Concomitant]
  4. ZOFRAN (ONDANSETRON) [Concomitant]
  5. MOTRIN (IBUPROFEN) [Concomitant]

REACTIONS (4)
  - Paraesthesia [None]
  - Dysphonia [None]
  - Glossodynia [None]
  - Off label use [None]
